FAERS Safety Report 14476913 (Version 1)
Quarter: 2018Q1

REPORT INFORMATION
  Report Type: Report from Study
  Country: US (occurrence: US)
  Receive Date: 20180201
  Receipt Date: 20180201
  Transmission Date: 20180509
  Serious: No
  Sender: FDA-Public Use
  Company Number: US-EXELIXIS-CABO-17009308

PATIENT
  Sex: Male

DRUGS (6)
  1. CABOMETYX [Suspect]
     Active Substance: CABOZANTINIB S-MALATE
     Indication: RENAL CANCER
     Dosage: 60 MG, QD
     Route: 048
     Dates: start: 20170428, end: 2017
  2. ALLOPURINOL. [Concomitant]
     Active Substance: ALLOPURINOL
  3. MULTIVITAMIN [Concomitant]
     Active Substance: VITAMINS
  4. CABOMETYX [Suspect]
     Active Substance: CABOZANTINIB S-MALATE
     Dosage: 60 MG, ONE WEEK ON THEN ONE WEEK OFF
     Route: 048
     Dates: start: 2017, end: 2017
  5. DIOVAN [Concomitant]
     Active Substance: VALSARTAN
  6. CABOMETYX [Suspect]
     Active Substance: CABOZANTINIB S-MALATE
     Dosage: 60 MG, 2 WEEKS ON THEN 2 DAYS OFF
     Route: 048
     Dates: start: 2017

REACTIONS (5)
  - Fatigue [Unknown]
  - Productive cough [Unknown]
  - Skin ulcer [Unknown]
  - Tongue discomfort [Unknown]
  - Rash generalised [Unknown]
